FAERS Safety Report 7490470-7 (Version None)
Quarter: 2011Q2

REPORT INFORMATION
  Report Type: 
  Country: None (occurrence: None)
  Receive Date: 20110517
  Receipt Date: 20110517
  Transmission Date: 20111010
  Serious: Yes (Other)
  Sender: FDA-Public Use
  Company Number: None

PATIENT
  Age: 63 Year
  Sex: Female

DRUGS (1)
  1. WARFARIN SODIUM [Suspect]
     Dates: start: 20110118, end: 20110411

REACTIONS (2)
  - PRODUCT SUBSTITUTION ISSUE [None]
  - INTERNATIONAL NORMALISED RATIO DECREASED [None]
